FAERS Safety Report 6316780-4 (Version None)
Quarter: 2009Q3

REPORT INFORMATION
  Report Type: 
  Country: None (occurrence: None)
  Receive Date: 20090820
  Receipt Date: 20090812
  Transmission Date: 20100115
  Serious: Yes (Other)
  Sender: FDA-Public Use
  Company Number: US-ELI_LILLY_AND_COMPANY-US200908002528

PATIENT
  Sex: Male

DRUGS (1)
  1. FORTEO [Suspect]
     Dosage: UNK, UNK
     Dates: start: 20081201

REACTIONS (4)
  - COLON CANCER [None]
  - COLON NEOPLASM [None]
  - HAEMOGLOBIN DECREASED [None]
  - INTESTINAL MASS [None]
